FAERS Safety Report 17241613 (Version 1)
Quarter: 2020Q1

REPORT INFORMATION
  Report Type: Spontaneous
  Country: US (occurrence: US)
  Receive Date: 20200107
  Receipt Date: 20200107
  Transmission Date: 20200409
  Serious: No
  Sender: FDA-Public Use
  Company Number: US-TARO-2019TAR00590

PATIENT
  Age: 53 Year
  Sex: Male
  Weight: 95.24 kg

DRUGS (4)
  1. TRIAMCINOLONE ACETONIDE CREAM USP 0.1% [Suspect]
     Active Substance: TRIAMCINOLONE ACETONIDE
     Indication: MILIARIA
     Dosage: ^THIN LAYER^, 2X/DAY
     Route: 061
     Dates: start: 20190730, end: 20190814
  2. UNSPECIFIED CHOLESTEROL MEDICINE [Concomitant]
  3. OMEPRAZOLE. [Concomitant]
     Active Substance: OMEPRAZOLE
  4. LEVOTHYROXINE. [Concomitant]
     Active Substance: LEVOTHYROXINE

REACTIONS (3)
  - Product quality issue [Recovered/Resolved]
  - Product storage error [Recovered/Resolved]
  - Therapeutic product effect delayed [Recovered/Resolved]

NARRATIVE: CASE EVENT DATE: 20190730
